FAERS Safety Report 21291772 (Version 2)
Quarter: 2022Q4

REPORT INFORMATION
  Report Type: Report from Study
  Country: US (occurrence: US)
  Receive Date: 20220903
  Receipt Date: 20221115
  Transmission Date: 20230112
  Serious: Yes (Hospitalization, Other)
  Sender: FDA-Public Use
  Company Number: US-ABBVIE-22K-163-4524969-00

PATIENT
  Sex: Female
  Weight: 62.595 kg

DRUGS (5)
  1. RINVOQ [Suspect]
     Active Substance: UPADACITINIB
     Indication: Rheumatoid arthritis
     Dosage: FORM STRENGTH: 15 MG
     Route: 048
  2. RINVOQ [Suspect]
     Active Substance: UPADACITINIB
     Indication: Rheumatoid arthritis
     Route: 048
     Dates: start: 202208
  3. XARELTO [Concomitant]
     Active Substance: RIVAROXABAN
     Indication: Ischaemic heart disease prophylaxis
  4. JANSSEN COVID-19 VACCINE [Concomitant]
     Active Substance: AD26.COV2.S
     Indication: COVID-19 immunisation
     Dosage: TIME INTERVAL: 1 TOTAL
     Route: 030
  5. ATORVASTATIN [Concomitant]
     Active Substance: ATORVASTATIN
     Indication: Blood cholesterol increased

REACTIONS (7)
  - Pulse abnormal [Recovering/Resolving]
  - Blood cholesterol increased [Not Recovered/Not Resolved]
  - Surgery [Not Recovered/Not Resolved]
  - Peripheral swelling [Recovered/Resolved]
  - Myocardial infarction [Recovering/Resolving]
  - Glucose tolerance impaired [Not Recovered/Not Resolved]
  - Pneumonia [Recovering/Resolving]

NARRATIVE: CASE EVENT DATE: 20220101
